FAERS Safety Report 24293705 (Version 1)
Quarter: 2024Q3

REPORT INFORMATION
  Report Type: Spontaneous
  Country: US (occurrence: None)
  Receive Date: 20240906
  Receipt Date: 20240906
  Transmission Date: 20241017
  Serious: No
  Sender: DOMPE FARMACEUTICI
  Company Number: US-FARMAPROD-202402-0542

PATIENT
  Sex: Female

DRUGS (15)
  1. OXERVATE [Suspect]
     Active Substance: CENEGERMIN-BKBJ
     Indication: Neurotrophic keratopathy
     Route: 047
     Dates: start: 20240130
  2. OXERVATE [Suspect]
     Active Substance: CENEGERMIN-BKBJ
  3. ZYRTEC [Concomitant]
     Active Substance: CETIRIZINE HYDROCHLORIDE
  4. MONTELUKAST SODIUM [Concomitant]
     Active Substance: MONTELUKAST\MONTELUKAST SODIUM
  5. FAMOTIDINE [Concomitant]
     Active Substance: FAMOTIDINE
  6. ATORVASTATIN CALCIUM [Concomitant]
     Active Substance: ATORVASTATIN CALCIUM
  7. LAMOTRIGINE [Concomitant]
     Active Substance: LAMOTRIGINE
  8. CARVEDILOL [Concomitant]
     Active Substance: CARVEDILOL
  9. ONDANSETRON HYDROCHLORIDE [Concomitant]
     Active Substance: ONDANSETRON HYDROCHLORIDE
  10. AUBAGIO [Concomitant]
     Active Substance: TERIFLUNOMIDE
  11. BUSPIRONE HCL [Concomitant]
     Active Substance: BUSPIRONE HYDROCHLORIDE
  12. ESOMEPRAZOLE MAGNESIUM [Concomitant]
     Active Substance: ESOMEPRAZOLE MAGNESIUM
  13. LISINOPRIL [Concomitant]
     Active Substance: LISINOPRIL
  14. LEVOTHYROXINE SODIUM [Concomitant]
     Active Substance: LEVOTHYROXINE SODIUM
  15. FLUOXETINE HYDROCHLORIDE [Concomitant]
     Active Substance: FLUOXETINE HYDROCHLORIDE

REACTIONS (3)
  - Drug ineffective [Not Recovered/Not Resolved]
  - Eye pain [Unknown]
  - Dry eye [Unknown]
